FAERS Safety Report 4588715-6 (Version None)
Quarter: 2005Q1

REPORT INFORMATION
  Report Type: 
  Country: None (occurrence: None)
  Receive Date: 20050214
  Receipt Date: 20050214
  Transmission Date: 20050727
  Serious: Yes (Death, Life-Threatening)
  Sender: FDA-Public Use
  Company Number: None

PATIENT
  Age: 87 Year
  Sex: Female
  Weight: 64.8644 kg

DRUGS (34)
  1. PROTAMINE SULFATE [Suspect]
     Indication: CORONARY ARTERY SURGERY
     Dosage: 300MG IV  OTO
     Route: 042
     Dates: start: 20041122, end: 20041122
  2. ZOLOFT [Concomitant]
  3. VASOTEC [Concomitant]
  4. ASPIRIN [Concomitant]
  5. AMIODARONE [Concomitant]
  6. AMOXICILLIN [Concomitant]
  7. ATORVASTATIN [Concomitant]
  8. BUMETANIDE [Concomitant]
  9. CARVEDILOL [Concomitant]
  10. PERIDEX [Concomitant]
  11. LISINOPRIL [Concomitant]
  12. POTASSIUM CHLORIDE [Concomitant]
  13. MORPHINE [Concomitant]
  14. VERSED [Concomitant]
  15. FORANE [Concomitant]
  16. O2 [Concomitant]
  17. NITROGLYCERIN [Concomitant]
  18. TRASYLOL [Concomitant]
  19. NIPRIDE [Concomitant]
  20. CEFAZOLIN [Concomitant]
  21. NORCURON [Concomitant]
  22. HEPARIN [Concomitant]
  23. DOBUTAMINE HCL [Concomitant]
  24. EPINEPHRINE [Concomitant]
  25. INOCOR [Concomitant]
  26. ALBUMIN (HUMAN) [Concomitant]
  27. SODIUM BICARB [Concomitant]
  28. MANNITOL [Concomitant]
  29. LIDOCAINE [Concomitant]
  30. CARDIOPLEGIA [Concomitant]
  31. NORMOSOL [Concomitant]
  32. RED BLOOD CELLS [Concomitant]
  33. INSULIN [Concomitant]
  34. MAGNESIUM [Concomitant]

REACTIONS (3)
  - BLOOD PRESSURE SYSTOLIC DECREASED [None]
  - GENERAL PHYSICAL HEALTH DETERIORATION [None]
  - HAEMODYNAMIC INSTABILITY [None]
